FAERS Safety Report 8462667-0 (Version None)
Quarter: 2012Q2

REPORT INFORMATION
  Report Type: 
  Country: None (occurrence: None)
  Receive Date: 20120625
  Receipt Date: 20120619
  Transmission Date: 20120825
  Serious: Yes (Hospitalization)
  Sender: FDA-Public Use
  Company Number: US-PFIZER INC-2012148620

PATIENT
  Age: 69 Year
  Sex: Female

DRUGS (4)
  1. CYTARABINE [Suspect]
     Indication: ACUTE MONOCYTIC LEUKAEMIA
     Dosage: 200 MG/M2, FOR 7 DAY
  2. IDARUBICIN [Concomitant]
     Indication: ACUTE MONOCYTIC LEUKAEMIA
     Dosage: 12 MG/M2, FOR 3 DAYS
  3. CYTARABINE [Suspect]
     Dosage: 100 MG/M2, FOR 5 DAYS
  4. IDARUBICIN [Concomitant]
     Dosage: 12 MG/M2, FOR 2 DAYS

REACTIONS (1)
  - CARDIAC TAMPONADE [None]
